FAERS Safety Report 6690561-4 (Version None)
Quarter: 2010Q2

REPORT INFORMATION
  Report Type: 
  Country: None (occurrence: None)
  Receive Date: 20100421
  Receipt Date: 20100419
  Transmission Date: 20101027
  Serious: Yes (Hospitalization)
  Sender: FDA-Public Use
  Company Number: A0815569A

PATIENT
  Age: 67 Year
  Sex: Male
  Weight: 107.7 kg

DRUGS (1)
  1. AVANDIA [Suspect]
     Dosage: 4MG TWICE PER DAY
     Route: 048
     Dates: start: 19990101, end: 20071001

REACTIONS (4)
  - CARDIAC DISORDER [None]
  - NIGHT BLINDNESS [None]
  - RETINAL DISORDER [None]
  - WEIGHT INCREASED [None]
